FAERS Safety Report 4408913-1 (Version None)
Quarter: 2004Q3

REPORT INFORMATION
  Report Type: 
  Country: None (occurrence: None)
  Receive Date: 20040727
  Receipt Date: 20040723
  Transmission Date: 20050211
  Serious: Yes (Death, Other)
  Sender: FDA-Public Use
  Company Number: US-BRISTOL-MYERS SQUIBB COMPANY-12648853

PATIENT
  Age: 66 Year
  Sex: Female

DRUGS (4)
  1. CISPLATIN [Suspect]
  2. CYTOXAN [Suspect]
  3. ETOPOSIDE [Suspect]
  4. ADRIAMYCIN PFS [Suspect]

REACTIONS (2)
  - CEREBRAL HAEMORRHAGE [None]
  - THROMBOCYTOPENIA [None]
